FAERS Safety Report 8156475 (Version 2)
Quarter: 2013Q2

REPORT INFORMATION
  Report Type: Spontaneous
  Country: US (occurrence: US)
  Receive Date: 20110926
  Receipt Date: 20130611
  Transmission Date: 20140414
  Serious: Yes (Hospitalization)
  Sender: FDA-Public Use
  Company Number: US-GLAXOSMITHKLINE-A0945643A

PATIENT
  Age: 53 Year
  Sex: Female
  Weight: 38.2 kg

DRUGS (4)
  1. ADVAIR [Suspect]
     Indication: PRODUCT USED FOR UNKNOWN INDICATION
     Route: 055
     Dates: start: 20110520, end: 201106
  2. SPIRIVA [Concomitant]
  3. ALBUTEROL [Concomitant]
  4. Z PAK [Concomitant]

REACTIONS (3)
  - Candida infection [Recovered/Resolved]
  - Chronic obstructive pulmonary disease [Unknown]
  - Nonspecific reaction [Unknown]
